FAERS Safety Report 8802459 (Version 2)
Quarter: 2015Q1

REPORT INFORMATION
  Report Type: Report from Study
  Country: US (occurrence: US)
  Receive Date: 20120921
  Receipt Date: 20150209
  Transmission Date: 20150721
  Serious: Yes (Death, Other)
  Sender: FDA-Public Use
  Company Number: US-ROCHE-1125974

PATIENT
  Sex: Female
  Weight: 44.95 kg

DRUGS (30)
  1. AVASTIN [Suspect]
     Active Substance: BEVACIZUMAB
     Indication: PANCREATIC CARCINOMA
     Route: 042
     Dates: start: 20100301
  2. PRILOSEC [Concomitant]
     Active Substance: OMEPRAZOLE MAGNESIUM
     Route: 048
  3. GEMZAR [Concomitant]
     Active Substance: GEMCITABINE HYDROCHLORIDE
  4. DECADRON [Concomitant]
     Active Substance: DEXAMETHASONE
     Route: 065
  5. MUCINEX [Concomitant]
     Active Substance: GUAIFENESIN
     Route: 048
  6. L-TRYPTOPHAN [Concomitant]
     Active Substance: TRYPTOPHAN
     Indication: MIGRAINE
     Route: 065
  7. OXALIPLATIN. [Concomitant]
     Active Substance: OXALIPLATIN
     Route: 042
  8. FLUOROURACIL. [Concomitant]
     Active Substance: FLUOROURACIL
     Route: 042
  9. HEPARIN [Concomitant]
     Active Substance: HEPARIN SODIUM
     Route: 042
  10. ALOXI [Concomitant]
     Active Substance: PALONOSETRON HYDROCHLORIDE
     Route: 042
  11. ALENDRONATE [Concomitant]
     Active Substance: ALENDRONATE SODIUM
     Route: 048
  12. CLARITIN [Concomitant]
     Active Substance: LORATADINE
     Route: 048
  13. ZOFRAN [Concomitant]
     Active Substance: ONDANSETRON HYDROCHLORIDE
     Indication: NAUSEA
     Route: 048
  14. MORPHINE [Concomitant]
     Active Substance: MORPHINE
     Route: 048
  15. PHENERGAN [Concomitant]
     Active Substance: PROMETHAZINE HYDROCHLORIDE
     Indication: NAUSEA
     Route: 061
  16. CHONDROITIN [Concomitant]
     Active Substance: CHONDROITIN
  17. SINGULAIR [Concomitant]
     Active Substance: MONTELUKAST SODIUM
     Route: 048
  18. PROVENTIL [Concomitant]
     Active Substance: ALBUTEROL
     Indication: DYSPNOEA
  19. CIPRO [Concomitant]
     Active Substance: CIPROFLOXACIN HYDROCHLORIDE
  20. EMEND [Concomitant]
     Active Substance: APREPITANT
     Route: 048
  21. DEXTROMETHORPHAN [Concomitant]
     Active Substance: DEXTROMETHORPHAN
     Indication: COUGH
     Route: 048
  22. SENNA S [Concomitant]
     Active Substance: DOCUSATE SODIUM\SENNA LEAF
     Route: 048
  23. LEUCOVORIN [Concomitant]
     Active Substance: LEUCOVORIN
     Route: 042
  24. PANCREATIC ENZYME [Concomitant]
  25. SUDAFED [Concomitant]
     Active Substance: PSEUDOEPHEDRINE HYDROCHLORIDE
     Route: 048
  26. ESTRACE [Concomitant]
     Active Substance: ESTRADIOL
     Route: 048
  27. TARCEVA [Suspect]
     Active Substance: ERLOTINIB HYDROCHLORIDE
     Indication: PANCREATIC CARCINOMA
     Route: 048
  28. MELATONIN [Concomitant]
     Active Substance: MELATONIN
     Route: 048
  29. OXAZEPAM. [Concomitant]
     Active Substance: OXAZEPAM
     Route: 048
  30. LORTAB [Concomitant]
     Active Substance: ACETAMINOPHEN\HYDROCODONE BITARTRATE
     Indication: PAIN
     Route: 048

REACTIONS (14)
  - Asthenia [Unknown]
  - Pyelonephritis [Unknown]
  - Fatigue [Unknown]
  - Death [Fatal]
  - Klebsiella sepsis [Recovered/Resolved]
  - Hypokalaemia [Unknown]
  - Cerumen impaction [Unknown]
  - Disease progression [Unknown]
  - Hypovolaemia [Unknown]
  - Abdominal discomfort [Recovered/Resolved]
  - Tympanic membrane disorder [Unknown]
  - Angiopathy [Unknown]
  - Decreased appetite [Unknown]
  - Headache [Unknown]
